FAERS Safety Report 8763647 (Version 3)
Quarter: 2012Q4

REPORT INFORMATION
  Report Type: 
  Country: FR (occurrence: FR)
  Receive Date: 20120828
  Receipt Date: 20120907
  Transmission Date: 20130627
  Serious: Yes (Hospitalization)
  Sender: FDA-Public Use
  Company Number: FR-VERTEX PHARMACEUTICAL INC.-000000000000000645

PATIENT
  Age: 55 Year
  Sex: Female
  Weight: 55 kg

DRUGS (6)
  1. TELAPREVIR [Suspect]
     Indication: HEPATITIS C
     Dosage: 750 mg, tid
     Route: 048
     Dates: start: 20111117, end: 20111215
  2. COPEGUS [Suspect]
     Indication: HEPATITIS C
     Dosage: 600 mg, bid
     Route: 065
     Dates: start: 20111117, end: 20111215
  3. PEGASYS [Suspect]
     Indication: HEPATITIS C
     Dosage: 180 ?g, weekly
     Route: 058
     Dates: start: 20111117
  4. PEGASYS [Suspect]
     Dosage: 135 ?g, weekly
     Route: 058
     Dates: start: 20111208
  5. PEGASYS [Suspect]
     Dosage: 90 ?g, weekly
     Route: 058
     Dates: start: 20111215, end: 20111215
  6. KARDEGIC [Concomitant]
     Dosage: 75 mg, qd

REACTIONS (8)
  - Muscular weakness [Recovered/Resolved]
  - Anxiety [Recovered/Resolved]
  - Vertigo [Recovered/Resolved]
  - Asthenia [Recovered/Resolved]
  - Depression [Unknown]
  - Thrombocytopenia [Recovered/Resolved]
  - Gingival bleeding [Recovered/Resolved]
  - General physical health deterioration [Recovered/Resolved]
